FAERS Safety Report 4319573-2 (Version None)
Quarter: 2004Q1

REPORT INFORMATION
  Report Type: 
  Country: None (occurrence: None)
  Receive Date: 20040316
  Receipt Date: 20040227
  Transmission Date: 20041129
  Serious: Yes (Hospitalization)
  Sender: FDA-Public Use
  Company Number: US_0402101155

PATIENT
  Age: 1 Day
  Sex: Male
  Weight: 4 kg

DRUGS (3)
  1. NPH ILETIN I (BEEF-PORK) [Suspect]
     Dates: start: 19810101
  2. NPH ILETIN I (BEEF-PORK) [Suspect]
     Dates: start: 19810101
  3. PRENATAL VITAMINS [Concomitant]

REACTIONS (3)
  - JAUNDICE NEONATAL [None]
  - MATERNAL DRUGS AFFECTING FOETUS [None]
  - PREMATURE BABY [None]
